FAERS Safety Report 25585958 (Version 1)
Quarter: 2025Q3

REPORT INFORMATION
  Report Type: Spontaneous
  Country: US (occurrence: None)
  Receive Date: 20250718
  Receipt Date: 20250718
  Transmission Date: 20251021
  Serious: Yes (Hospitalization, Disabling, Other)
  Sender: FDA-CTU
  Company Number: None

PATIENT
  Age: 31 Year
  Sex: Male
  Weight: 148.5 kg

DRUGS (6)
  1. INVEGA SUSTENNA [Suspect]
     Active Substance: PALIPERIDONE PALMITATE
     Indication: Sedative therapy
     Route: 030
     Dates: start: 20240811, end: 20250424
  2. Flexaril [Concomitant]
  3. HYDROCODONE [Concomitant]
     Active Substance: HYDROCODONE
  4. Epidural Steroidal Injections [Concomitant]
  5. TYLENOL [Concomitant]
     Active Substance: ACETAMINOPHEN
  6. NAPROXEN [Concomitant]
     Active Substance: NAPROXEN

REACTIONS (11)
  - Dehydration [None]
  - Product prescribing issue [None]
  - Diarrhoea [None]
  - Blood pressure increased [None]
  - Heart rate increased [None]
  - Headache [None]
  - Thirst [None]
  - Pain [None]
  - Dyspnoea [None]
  - Hyperglycaemia [None]
  - Weight increased [None]

NARRATIVE: CASE EVENT DATE: 20250424
